FAERS Safety Report 24292534 (Version 1)
Quarter: 2024Q3

REPORT INFORMATION
  Report Type: Spontaneous
  Country: UA (occurrence: UA)
  Receive Date: 20240906
  Receipt Date: 20240906
  Transmission Date: 20241016
  Serious: Yes (Hospitalization)
  Sender: MERCK
  Company Number: UA-009507513-2407UKR014360

PATIENT
  Age: 58 Year
  Sex: Male
  Weight: 76 kg

DRUGS (2)
  1. KEYTRUDA [Suspect]
     Active Substance: PEMBROLIZUMAB
     Indication: Tonsil cancer
     Dosage: 200 (UNKNOWN UNITS), ONCE PER 21 DAYS
     Dates: start: 20240621, end: 20240712
  2. KEYTRUDA [Suspect]
     Active Substance: PEMBROLIZUMAB
     Indication: Oropharyngeal squamous cell carcinoma

REACTIONS (1)
  - Blood glucose increased [Recovered/Resolved with Sequelae]

NARRATIVE: CASE EVENT DATE: 20240724
